FAERS Safety Report 4861843-3 (Version None)
Quarter: 2005Q4

REPORT INFORMATION
  Report Type: 
  Country: None (occurrence: None)
  Receive Date: 20051129
  Receipt Date: 20050603
  Transmission Date: 20060501
  Serious: Yes (Disabling)
  Sender: FDA-Public Use
  Company Number: WAES 0506USA00858

PATIENT
  Age: 82 Year
  Sex: Female
  Weight: 47.6277 kg

DRUGS (1)
  1. FOSAMAX [Suspect]
     Indication: OSTEOPOROSIS
     Dosage: 70 MG / WKY / PO
     Route: 048

REACTIONS (1)
  - MYALGIA [None]
